FAERS Safety Report 16483910 (Version 1)
Quarter: 2019Q3

REPORT INFORMATION
  Report Type: Spontaneous
  Country: US (occurrence: US)
  Receive Date: 20190620
  Receipt Date: 20190620
  Transmission Date: 20191004
  Serious: No
  Sender: FDA-Public Use
  Company Number: None

PATIENT
  Age: 57 Year
  Sex: Female

DRUGS (1)
  1. MAYZENT [Suspect]
     Active Substance: SIPONIMOD
     Route: 048
     Dates: start: 20190523

REACTIONS (3)
  - Urinary tract infection [None]
  - Cough [None]
  - Pulmonary congestion [None]

NARRATIVE: CASE EVENT DATE: 20190620
